FAERS Safety Report 15117410 (Version 1)
Quarter: 2018Q3

REPORT INFORMATION
  Report Type: Spontaneous
  Country: JP (occurrence: JP)
  Receive Date: 20180706
  Receipt Date: 20180706
  Transmission Date: 20181010
  Serious: Yes (Other)
  Sender: FDA-Public Use
  Company Number: JP-MYLANLABS-2018M1048745

PATIENT
  Age: 19 Year
  Sex: Female
  Weight: 50 kg

DRUGS (10)
  1. EPINEPHRINE. [Suspect]
     Active Substance: EPINEPHRINE
     Indication: LOCAL ANAESTHESIA
     Dosage: 1:100000 ; 12ML (LIDOCAINE ALONG WITH EPINEPHRINE)
     Route: 065
  2. LIDOCAINE. [Concomitant]
     Active Substance: LIDOCAINE
     Indication: LOCAL ANAESTHESIA
     Dosage: 12 ML (LIDOCAINE ALONG WITH EPINEPHRINE)
     Route: 065
  3. LIDOCAINE. [Concomitant]
     Active Substance: LIDOCAINE
     Dosage: AND 10 ML (LIDOCAINE ALONG WITH EPINEPHRINE)
     Route: 065
  4. REMIFENTANIL [Concomitant]
     Active Substance: REMIFENTANIL
     Dosage: 0.1?0.15 MICROG/KG/MIN ; INFUSION
     Route: 050
  5. EPINEPHRINE. [Suspect]
     Active Substance: EPINEPHRINE
     Dosage: 1:100000 ; 10 ML (LIDOCAINE ALONG WITH EPINEPHRINE)
     Route: 065
  6. ROCURONIUM [Concomitant]
     Active Substance: ROCURONIUM BROMIDE
     Indication: GENERAL ANAESTHESIA
     Dosage: 30 MG
     Route: 065
  7. PROPOFOL. [Concomitant]
     Active Substance: PROPOFOL
     Dosage: 4.5?5.0 MICROG/ML
     Route: 041
  8. FENTANYL. [Concomitant]
     Active Substance: FENTANYL
     Indication: GENERAL ANAESTHESIA
     Dosage: 250 MICROG
     Route: 050
  9. PROPOFOL. [Concomitant]
     Active Substance: PROPOFOL
     Indication: GENERAL ANAESTHESIA
     Dosage: 6 MICROG/ML ; PROPOFOL INFUSION
     Route: 041
  10. REMIFENTANIL [Concomitant]
     Active Substance: REMIFENTANIL
     Indication: GENERAL ANAESTHESIA
     Dosage: 0.3 MICROG/KG/MIN; INFUSION
     Route: 050

REACTIONS (1)
  - Nodal rhythm [Recovered/Resolved]
